FAERS Safety Report 12739335 (Version 1)
Quarter: 2016Q3

REPORT INFORMATION
  Report Type: Spontaneous
  Country: US (occurrence: US)
  Receive Date: 20160913
  Receipt Date: 20160913
  Transmission Date: 20161109
  Serious: Yes (Other)
  Sender: FDA-Public Use
  Company Number: None

PATIENT
  Age: 50 Year
  Sex: Female
  Weight: 90 kg

DRUGS (5)
  1. DIOVAN [Concomitant]
     Active Substance: VALSARTAN
  2. TRINTELLIX [Suspect]
     Active Substance: VORTIOXETINE HYDROBROMIDE
     Indication: DEPRESSION
     Dosage: 1 TABLET AT BEDTIME ORAL
     Route: 048
     Dates: start: 20160614, end: 20160801
  3. IBUPROFEN. [Concomitant]
     Active Substance: IBUPROFEN
  4. JANUMET [Concomitant]
     Active Substance: METFORMIN HYDROCHLORIDE\SITAGLIPTIN PHOSPHATE
  5. TRAZODONE [Concomitant]
     Active Substance: TRAZODONE HYDROCHLORIDE

REACTIONS (1)
  - Nightmare [None]

NARRATIVE: CASE EVENT DATE: 20160713
